FAERS Safety Report 6069883-6 (Version None)
Quarter: 2009Q1

REPORT INFORMATION
  Report Type: 
  Country: None (occurrence: None)
  Receive Date: 20090209
  Receipt Date: 20090109
  Transmission Date: 20090719
  Serious: No
  Sender: FDA-Public Use
  Company Number: US-BAYER-200837249NA

PATIENT
  Age: 54 Year
  Sex: Female

DRUGS (1)
  1. CLIMARA PRO [Suspect]
     Indication: MOOD SWINGS
     Route: 062
     Dates: start: 20081003, end: 20081027

REACTIONS (6)
  - DEPRESSED MOOD [None]
  - HOT FLUSH [None]
  - MOOD SWINGS [None]
  - NO ADVERSE EVENT [None]
  - PERSONALITY DISORDER [None]
  - PRODUCT QUALITY ISSUE [None]
